FAERS Safety Report 20847907 (Version 1)
Quarter: 2022Q2

REPORT INFORMATION
  Report Type: Report from Study
  Country: US (occurrence: US)
  Receive Date: 20220519
  Receipt Date: 20220519
  Transmission Date: 20220721
  Serious: No
  Sender: FDA-Public Use
  Company Number: US-VANDA PHARMACEUTICALS, INC-2022ILOUS001879

PATIENT
  Sex: Female

DRUGS (2)
  1. FANAPT [Suspect]
     Active Substance: ILOPERIDONE
     Indication: Bipolar disorder
     Dosage: UNK
     Route: 065
     Dates: start: 2017
  2. FANAPT [Suspect]
     Active Substance: ILOPERIDONE
     Indication: Personality disorder

REACTIONS (3)
  - Bipolar disorder [Unknown]
  - Personality disorder [Unknown]
  - Off label use [Unknown]
